FAERS Safety Report 9530193 (Version 1)
Quarter: 2013Q3

REPORT INFORMATION
  Report Type: Report from Study
  Country: UG (occurrence: UG)
  Receive Date: 20130917
  Receipt Date: 20130917
  Transmission Date: 20140515
  Serious: Yes (Other)
  Sender: FDA-Public Use
  Company Number: UG-B.I. PHARMACEUTICALS,INC./RIDGEFIELD-2013-BI-28545GD

PATIENT
  Sex: Female

DRUGS (2)
  1. VIRAMUNE [Suspect]
  2. ARTANE [Suspect]
     Indication: HIV INFECTION

REACTIONS (1)
  - Systemic candida [Unknown]
